FAERS Safety Report 13375768 (Version 1)
Quarter: 2017Q1

REPORT INFORMATION
  Report Type: Spontaneous
  Country: GB (occurrence: GB)
  Receive Date: 20170328
  Receipt Date: 20170328
  Transmission Date: 20170429
  Serious: Yes (Other)
  Sender: FDA-Public Use
  Company Number: GB-ACCORD-049458

PATIENT
  Age: 57 Year
  Sex: Female
  Weight: 101.6 kg

DRUGS (2)
  1. AMLODIPINE [Suspect]
     Active Substance: AMLODIPINE BESYLATE
     Indication: HYPERTENSION
     Route: 048
     Dates: start: 20170302, end: 20170303
  2. OENOTHERA BIENNIS [Concomitant]
     Active Substance: OENOTHERA BIENNIS

REACTIONS (5)
  - Fatigue [Recovering/Resolving]
  - Feeling hot [Recovered/Resolved]
  - Cough [Not Recovered/Not Resolved]
  - Dizziness [Recovered/Resolved]
  - Eye swelling [Recovering/Resolving]

NARRATIVE: CASE EVENT DATE: 20170303
